FAERS Safety Report 19940543 (Version 1)
Quarter: 2021Q4

REPORT INFORMATION
  Report Type: Report from Study
  Country: DE (occurrence: DE)
  Receive Date: 20211011
  Receipt Date: 20211011
  Transmission Date: 20220303
  Serious: Yes (Hospitalization)
  Sender: FDA-Public Use
  Company Number: DE-PFIZER INC-2020249421

PATIENT
  Age: 63 Year
  Sex: Female
  Weight: 78 kg

DRUGS (4)
  1. PREDNISOLONE [Suspect]
     Active Substance: PREDNISOLONE
     Indication: Rheumatoid arthritis
     Dosage: 5 MILLIGRAM, QD (5 MG, 1X/DAY)
     Route: 048
     Dates: start: 20191204, end: 20200520
  2. XELJANZ [Suspect]
     Active Substance: TOFACITINIB CITRATE
     Indication: Rheumatoid arthritis
     Dosage: 10 MILLIGRAM, QD (5 MG, 2X/DAY)
     Route: 048
     Dates: start: 20180904, end: 20200520
  3. FLUTICASONE PROPIONATE\SALMETEROL XINAFOATE [Concomitant]
     Active Substance: FLUTICASONE PROPIONATE\SALMETEROL XINAFOATE
     Indication: Asthma
     Dosage: UNK
     Route: 048
     Dates: start: 202002
  4. PANTOPRAZOLE [Concomitant]
     Active Substance: PANTOPRAZOLE
     Indication: Prophylaxis
     Dosage: UNK
     Route: 048
     Dates: start: 2018

REACTIONS (2)
  - Rheumatoid arthritis [Recovering/Resolving]
  - Drug ineffective [Not Recovered/Not Resolved]

NARRATIVE: CASE EVENT DATE: 20200520
